FAERS Safety Report 23761034 (Version 1)
Quarter: 2024Q2

REPORT INFORMATION
  Report Type: Spontaneous
  Country: ES (occurrence: ES)
  Receive Date: 20240419
  Receipt Date: 20240419
  Transmission Date: 20240716
  Serious: Yes (Hospitalization, Other)
  Sender: FDA-Public Use
  Company Number: ES-GLAXOSMITHKLINE-ES2024GSK040866

PATIENT
  Weight: 2.26 kg

DRUGS (4)
  1. LAMOTRIGINE [Suspect]
     Active Substance: LAMOTRIGINE
     Indication: Product used for unknown indication
     Dosage: UNK
     Route: 064
  2. LITHIUM [Suspect]
     Active Substance: LITHIUM
     Indication: Bipolar disorder
     Dosage: 1200 MG, 1D
     Route: 064
  3. ASENAPINE [Suspect]
     Active Substance: ASENAPINE
     Indication: Insomnia
     Dosage: 10 MG, 1D
     Route: 064
  4. ASENAPINE [Suspect]
     Active Substance: ASENAPINE
     Indication: Anxiety
     Dosage: 15 MG, 1D PER NIGHT
     Route: 064

REACTIONS (4)
  - Bradypnoea [Recovered/Resolved]
  - Cyanosis [Recovered/Resolved]
  - Premature baby [Unknown]
  - Foetal exposure during pregnancy [Unknown]
